FAERS Safety Report 5596415-9 (Version None)
Quarter: 2007Q4

REPORT INFORMATION
  Report Type: 
  Country: None (occurrence: None)
  Receive Date: 20071218
  Receipt Date: 20070712
  Transmission Date: 20080405
  Serious: Yes (Hospitalization, Other)
  Sender: FDA-Public Use
  Company Number: 2007058051

PATIENT
  Age: 41 Year
  Sex: Female
  Weight: 117.9 kg

DRUGS (2)
  1. BEXTRA [Suspect]
     Indication: ARTHRALGIA
     Dosage: 10 MG (10 MG, 1 IN 1D)
     Dates: start: 20010301
  2. CELEBREX [Suspect]
     Indication: ARTHRALGIA
     Dosage: 100 MG (100 MG, 1 IN 1 D)
     Dates: start: 20010301

REACTIONS (2)
  - DEEP VEIN THROMBOSIS [None]
  - PULMONARY EMBOLISM [None]
